FAERS Safety Report 5344228-5 (Version None)
Quarter: 2007Q2

REPORT INFORMATION
  Report Type: 
  Country: None (occurrence: None)
  Receive Date: 20070531
  Receipt Date: 20070531
  Transmission Date: 20071010
  Serious: Yes (Hospitalization)
  Sender: FDA-Public Use
  Company Number: None

PATIENT
  Age: 88 Year
  Sex: Female

DRUGS (12)
  1. CARDIZEM [Suspect]
     Indication: HYPERTENSION
     Dates: end: 20060824
  2. METOPROLOL SUCCINATE [Suspect]
     Indication: HYPERTENSION
     Dates: end: 20060824
  3. DYAZIDE [Concomitant]
  4. PLAVIX [Concomitant]
  5. PROTONIX [Concomitant]
  6. CARDIZEM CD [Concomitant]
  7. CELEBREX [Concomitant]
  8. ARICEPT [Concomitant]
  9. NORVASC [Concomitant]
  10. COLACE [Concomitant]
  11. NITROGLYCERIN [Concomitant]
  12. DIGOXIN [Concomitant]

REACTIONS (3)
  - ATRIOVENTRICULAR BLOCK COMPLETE [None]
  - CARDIAC DISORDER [None]
  - CHEST PAIN [None]
